FAERS Safety Report 13172762 (Version 3)
Quarter: 2017Q1

REPORT INFORMATION
  Report Type: Spontaneous
  Country: IT (occurrence: IT)
  Receive Date: 20170201
  Receipt Date: 20170216
  Transmission Date: 20170428
  Serious: Yes (Other)
  Sender: FDA-Public Use
  Company Number: IT-ELI_LILLY_AND_COMPANY-IT201701006892

PATIENT
  Age: 61 Year
  Sex: Male
  Weight: 63 kg

DRUGS (3)
  1. CARBOPLATIN. [Suspect]
     Active Substance: CARBOPLATIN
     Indication: LUNG ADENOCARCINOMA
     Dosage: 500 MG, CYCLICAL
     Route: 042
     Dates: start: 20160706
  2. ALIMTA [Suspect]
     Active Substance: PEMETREXED DISODIUM
     Indication: LUNG ADENOCARCINOMA
     Dosage: 865 MG, CYCLICAL
     Route: 042
     Dates: start: 20160615
  3. CISPLATIN. [Suspect]
     Active Substance: CISPLATIN
     Indication: LUNG ADENOCARCINOMA
     Dosage: 130 MG, CYCLICAL
     Route: 042
     Dates: start: 20160615, end: 20160615

REACTIONS (8)
  - Hypoacusis [Not Recovered/Not Resolved]
  - Anaemia [Not Recovered/Not Resolved]
  - Decreased appetite [Not Recovered/Not Resolved]
  - Hypertransaminasaemia [Unknown]
  - Anaemia [Recovering/Resolving]
  - Neutropenia [Not Recovered/Not Resolved]
  - Thrombocytopenia [Recovering/Resolving]
  - Off label use [Unknown]

NARRATIVE: CASE EVENT DATE: 20160618
